FAERS Safety Report 6632670-1 (Version None)
Quarter: 2010Q1

REPORT INFORMATION
  Report Type: 
  Country: None (occurrence: None)
  Receive Date: 20100312
  Receipt Date: 20100305
  Transmission Date: 20100710
  Serious: Yes (Death, Hospitalization)
  Sender: FDA-Public Use
  Company Number: US-ELI_LILLY_AND_COMPANY-US200911007284

PATIENT
  Sex: Female
  Weight: 79.819 kg

DRUGS (1)
  1. BYETTA [Suspect]
     Indication: TYPE 2 DIABETES MELLITUS
     Dosage: UNK, UNKNOWN
     Route: 065
     Dates: start: 20061201, end: 20070901

REACTIONS (25)
  - ABDOMINAL PAIN UPPER [None]
  - ASPIRATION [None]
  - BACTERAEMIA [None]
  - BLOOD CULTURE POSITIVE [None]
  - CARDIOMEGALY [None]
  - DEHYDRATION [None]
  - DIARRHOEA [None]
  - DUODENITIS [None]
  - ENTEROCOCCAL BACTERAEMIA [None]
  - ERYTHEMA [None]
  - FAILURE TO THRIVE [None]
  - GASTRITIS [None]
  - HEPATIC STEATOSIS [None]
  - IMPAIRED GASTRIC EMPTYING [None]
  - INTESTINAL ISCHAEMIA [None]
  - KLEBSIELLA INFECTION [None]
  - LACTIC ACIDOSIS [None]
  - NAUSEA [None]
  - PANCREATITIS [None]
  - POLYP [None]
  - RENAL INJURY [None]
  - RESPIRATORY FAILURE [None]
  - SEPTIC SHOCK [None]
  - SMALL INTESTINAL OBSTRUCTION [None]
  - VOMITING [None]
